FAERS Safety Report 17170837 (Version 1)
Quarter: 2019Q4

REPORT INFORMATION
  Report Type: Spontaneous
  Country: DE (occurrence: DE)
  Receive Date: 20191218
  Receipt Date: 20191218
  Transmission Date: 20200122
  Serious: Yes (Congenital Anomaly)
  Sender: FDA-Public Use
  Company Number: DE-ASTRAZENECA-2019SF78997

PATIENT
  Age: 8 Year
  Sex: Female
  Weight: 3.7 kg

DRUGS (3)
  1. VITAMIN D NOS [Concomitant]
     Active Substance: VITAMIN D NOS
     Indication: OSTEOPENIA
     Dosage: 2000 [I.E./D ]/ 1000 TO 2000 IE/D
     Route: 064
     Dates: start: 20100406, end: 20110109
  2. NEXIUM MUPS [Suspect]
     Active Substance: ESOMEPRAZOLE
     Indication: GASTROOESOPHAGEAL REFLUX DISEASE
     Dosage: 20 [MG/D ]
     Route: 064
  3. CALCIUM CARBONATE. [Concomitant]
     Active Substance: CALCIUM CARBONATE
     Indication: OSTEOPENIA
     Dosage: 1500 [MG/D ]
     Route: 064
     Dates: start: 20100406, end: 20110109

REACTIONS (2)
  - Tooth discolouration congenital [Not Recovered/Not Resolved]
  - Foetal exposure during pregnancy [Unknown]
